FAERS Safety Report 5937538-1 (Version None)
Quarter: 2008Q4

REPORT INFORMATION
  Report Type: 
  Country: None (occurrence: None)
  Receive Date: 20081029
  Receipt Date: 20081017
  Transmission Date: 20090506
  Serious: Yes (Hospitalization)
  Sender: FDA-Public Use
  Company Number: 2008BI020001

PATIENT
  Age: 56 Year
  Sex: Female
  Weight: 65.7716 kg

DRUGS (3)
  1. TYSABRI [Suspect]
     Indication: MULTIPLE SCLEROSIS
     Dosage: 300 MG; QM; IV
     Route: 042
     Dates: start: 20070222, end: 20080716
  2. AVONEX [Concomitant]
  3. LORTAB [Concomitant]

REACTIONS (18)
  - ANOREXIA [None]
  - ASTHENIA [None]
  - BACK PAIN [None]
  - BREAST DISCOMFORT [None]
  - BREAST DISORDER [None]
  - BURNING SENSATION [None]
  - CONTUSION [None]
  - DISEASE PROGRESSION [None]
  - EAR DISCOMFORT [None]
  - FATIGUE [None]
  - GAIT DISTURBANCE [None]
  - HYPOTENSION [None]
  - IMPAIRED DRIVING ABILITY [None]
  - INCORRECT DOSE ADMINISTERED [None]
  - MEMORY IMPAIRMENT [None]
  - MULTIPLE SCLEROSIS [None]
  - VITAMIN D DECREASED [None]
  - WEIGHT DECREASED [None]
